FAERS Safety Report 20298620 (Version 1)
Quarter: 2022Q1

REPORT INFORMATION
  Report Type: Spontaneous
  Country: US (occurrence: None)
  Receive Date: 20220104
  Receipt Date: 20220104
  Transmission Date: 20220423
  Serious: Yes (Hospitalization)
  Sender: FDA-Public Use
  Company Number: None

PATIENT
  Age: 65 Year
  Sex: Male

DRUGS (1)
  1. ABECMA [Suspect]
     Active Substance: IDECABTAGENE VICLEUCEL
     Indication: Plasma cell myeloma
     Dosage: FREQUENCY : ONCE;?
     Route: 042
     Dates: start: 20210719, end: 20210719

REACTIONS (3)
  - Neurotoxicity [None]
  - Fungal endocarditis [None]
  - Aspergillus infection [None]

NARRATIVE: CASE EVENT DATE: 20210719
